FAERS Safety Report 22168730 (Version 2)
Quarter: 2023Q2

REPORT INFORMATION
  Report Type: Spontaneous
  Country: US (occurrence: US)
  Receive Date: 20230403
  Receipt Date: 20230508
  Transmission Date: 20230721
  Serious: No
  Sender: FDA-Public Use
  Company Number: US-BAUSCHBL-2023BNL002690

PATIENT
  Age: 59 Year
  Sex: Male
  Weight: 88.530 kg

DRUGS (4)
  1. LUMIFY [Suspect]
     Active Substance: BRIMONIDINE TARTRATE
     Indication: Product used for unknown indication
     Dosage: TAKING SINCE 2 YEARS
     Route: 065
     Dates: start: 2021
  2. LUMIFY [Suspect]
     Active Substance: BRIMONIDINE TARTRATE
     Route: 065
  3. LISINOPRIL [Concomitant]
     Active Substance: LISINOPRIL
     Indication: Hypertension
     Dosage: TAKING SINCE 9 YEARS
  4. NORVASC [Concomitant]
     Active Substance: AMLODIPINE BESYLATE
     Indication: Hypertension
     Dosage: TAKING SINCE 9 YEARS

REACTIONS (4)
  - Therapeutic product effect decreased [Unknown]
  - Product quality issue [Unknown]
  - Intentional product use issue [Unknown]
  - No adverse event [Unknown]
